FAERS Safety Report 23711683 (Version 1)
Quarter: 2024Q2

REPORT INFORMATION
  Report Type: Spontaneous
  Country: US (occurrence: None)
  Receive Date: 20240404
  Receipt Date: 20240404
  Transmission Date: 20240716
  Serious: No
  Sender: FDA-Public Use
  Company Number: None

PATIENT
  Age: 74 Year
  Sex: Female

DRUGS (1)
  1. AMBRISENTAN [Suspect]
     Active Substance: AMBRISENTAN
     Indication: Pulmonary arterial hypertension
     Dosage: 10 MG DAILY ORAL
     Route: 048

REACTIONS (4)
  - Carpal tunnel decompression [None]
  - Multiple allergies [None]
  - Sinus disorder [None]
  - Dyspnoea [None]

NARRATIVE: CASE EVENT DATE: 20240403
